FAERS Safety Report 6395957-6 (Version None)
Quarter: 2009Q4

REPORT INFORMATION
  Report Type: 
  Country: None (occurrence: None)
  Receive Date: 20091009
  Receipt Date: 20090930
  Transmission Date: 20100525
  Serious: Yes (Hospitalization, Other)
  Sender: FDA-Public Use
  Company Number: PHHY2009JP29151

PATIENT
  Sex: Female
  Weight: 24 kg

DRUGS (5)
  1. TEGRETOL [Suspect]
     Indication: POST HERPETIC NEURALGIA
     Dosage: 100 MG, 1 TO 3 TABLETS PER DAY
     Route: 048
     Dates: start: 20061107, end: 20090105
  2. GABAPENTIN [Suspect]
     Indication: POST HERPETIC NEURALGIA
     Dosage: 200 MG, 3 TO 9 TABLETS DAILY
     Route: 048
     Dates: start: 20070619, end: 20090105
  3. AMLODIPINE [Concomitant]
     Indication: HYPERTENSION
     Dosage: 2.5 MG, UNK
     Route: 048
     Dates: start: 19990111, end: 20090707
  4. VALTREX [Concomitant]
     Indication: HERPES ZOSTER
     Dosage: 3000 MG
     Route: 048
     Dates: start: 20060930, end: 20061006
  5. LOXONIN [Concomitant]
     Indication: POST HERPETIC NEURALGIA
     Dosage: 180 MG
     Route: 048
     Dates: start: 20061004, end: 20061108

REACTIONS (13)
  - BLOOD ALKALINE PHOSPHATASE INCREASED [None]
  - BLOOD GLUCOSE INCREASED [None]
  - BLOOD IRON DECREASED [None]
  - CONCOMITANT DISEASE AGGRAVATED [None]
  - COUGH [None]
  - DECREASED APPETITE [None]
  - DYSPNOEA [None]
  - IRON BINDING CAPACITY TOTAL DECREASED [None]
  - LEUCINE AMINOPEPTIDASE INCREASED [None]
  - LYMPHOCYTE STIMULATION TEST POSITIVE [None]
  - PNEUMOMEDIASTINUM [None]
  - PULMONARY FIBROSIS [None]
  - WEIGHT DECREASED [None]
